FAERS Safety Report 8023246-2 (Version None)
Quarter: 2012Q1

REPORT INFORMATION
  Report Type: 
  Country: None (occurrence: None)
  Receive Date: 20120104
  Receipt Date: 20111227
  Transmission Date: 20120608
  Serious: Yes (Hospitalization, Other)
  Sender: FDA-Public Use
  Company Number: US-BAYER-2011-063274

PATIENT
  Age: 48 Year
  Sex: Female
  Weight: 102 kg

DRUGS (6)
  1. CALCIUM ACETATE [Concomitant]
     Indication: MEDICAL DIET
     Dosage: UNK UNK, QD
     Route: 048
     Dates: start: 20100201
  2. YASMIN [Suspect]
     Indication: CONTRACEPTION
     Dosage: UNK
     Dates: start: 20020101, end: 20060801
  3. DARVOCET [Concomitant]
     Indication: PAIN
     Dosage: UNK UNK, PRN
     Route: 048
     Dates: start: 20100204
  4. CELEXA [Concomitant]
     Indication: ANXIETY
     Dosage: 5 MG, QD
     Route: 048
     Dates: start: 20000101
  5. PROMETHAZINE [Concomitant]
     Indication: NAUSEA
     Dosage: 25 MG, PRN
     Route: 048
     Dates: start: 20100204
  6. YAZ [Suspect]
     Indication: CONTRACEPTION
     Dosage: UNK
     Dates: start: 20060901, end: 20110101

REACTIONS (6)
  - CHOLECYSTITIS [None]
  - CHOLELITHIASIS [None]
  - INJURY [None]
  - CHOLECYSTITIS ACUTE [None]
  - BILIARY COLIC [None]
  - PAIN [None]
